FAERS Safety Report 13477509 (Version 1)
Quarter: 2017Q2

REPORT INFORMATION
  Report Type: Spontaneous
  Country: US (occurrence: US)
  Receive Date: 20170425
  Receipt Date: 20170425
  Transmission Date: 20170830
  Serious: Yes (Other)
  Sender: FDA-Public Use
  Company Number: None

PATIENT
  Age: 85 Year
  Sex: Male
  Weight: 72.8 kg

DRUGS (2)
  1. COLISTIMETHATE 3,000,000 [Suspect]
     Active Substance: COLISTIMETHATE SODIUM
     Indication: URINARY TRACT INFECTION ENTEROCOCCAL
     Route: 042
     Dates: start: 20160515, end: 20160517
  2. COLISTIMETHATE 3,000,000 [Suspect]
     Active Substance: COLISTIMETHATE SODIUM
     Indication: PNEUMONIA
     Route: 042
     Dates: start: 20160515, end: 20160517

REACTIONS (1)
  - Blood creatinine increased [None]

NARRATIVE: CASE EVENT DATE: 20160517
